FAERS Safety Report 24853244 (Version 7)
Quarter: 2025Q2

REPORT INFORMATION
  Report Type: Spontaneous
  Country: JP (occurrence: JP)
  Receive Date: 20250117
  Receipt Date: 20250627
  Transmission Date: 20250716
  Serious: Yes (Hospitalization)
  Sender: ASTELLAS
  Company Number: JP-ASTELLAS-2024-AER-027065

PATIENT
  Age: 67 Year
  Sex: Female
  Weight: 60 kg

DRUGS (20)
  1. PADCEV [Suspect]
     Active Substance: ENFORTUMAB VEDOTIN-EJFV
     Indication: Ureteric cancer
     Route: 042
     Dates: start: 20241212, end: 20241219
  2. PADCEV [Suspect]
     Active Substance: ENFORTUMAB VEDOTIN-EJFV
     Dosage: ADMINISTERED EVERY OTHER WEEK WITH THREE-STAGE DOSE REDUCTION
     Route: 042
     Dates: start: 20250213, end: 20250410
  3. PADCEV [Suspect]
     Active Substance: ENFORTUMAB VEDOTIN-EJFV
     Route: 042
     Dates: start: 20250116, end: 20250123
  4. PADCEV [Suspect]
     Active Substance: ENFORTUMAB VEDOTIN-EJFV
     Route: 042
     Dates: start: 20250508, end: 20250508
  5. PEMBROLIZUMAB [Concomitant]
     Active Substance: PEMBROLIZUMAB
     Indication: Ureteric cancer
     Route: 065
     Dates: start: 20241212
  6. ENTECAVIR OD Tablets [Concomitant]
     Indication: Hepatitis B
     Route: 048
     Dates: start: 20231204
  7. FAMOTIDINE [Concomitant]
     Active Substance: FAMOTIDINE
     Indication: Chronic gastritis
     Route: 048
     Dates: start: 20231208, end: 20240328
  8. FAMOTIDINE [Concomitant]
     Active Substance: FAMOTIDINE
     Route: 048
     Dates: start: 20241215
  9. BILANOA OD [Concomitant]
     Indication: Rash maculo-papular
     Route: 048
     Dates: start: 20241224
  10. PREDONINE [Concomitant]
     Active Substance: PREDNISOLONE
     Indication: Rash maculo-papular
     Dosage: 8T/DAY
     Route: 048
     Dates: start: 20241226
  11. PREDONINE [Concomitant]
     Active Substance: PREDNISOLONE
     Dosage: 6T/DAY
     Route: 048
     Dates: start: 20241230
  12. PREDONINE [Concomitant]
     Active Substance: PREDNISOLONE
     Dosage: 4T/DAY
     Route: 048
     Dates: start: 20250103
  13. PREDONINE [Concomitant]
     Active Substance: PREDNISOLONE
     Dosage: 2T/DAY
     Route: 048
     Dates: start: 20250107
  14. PREDONINE [Concomitant]
     Active Substance: PREDNISOLONE
     Dosage: 1T/DAY
     Route: 048
     Dates: start: 20250109, end: 20250111
  15. PREDONINE [Concomitant]
     Active Substance: PREDNISOLONE
     Dosage: 4T/DAY
     Route: 048
     Dates: start: 20241224
  16. MYSER [DIFLUPREDNATE] [Concomitant]
     Indication: Rash maculo-papular
     Route: 065
     Dates: start: 20241224
  17. GENTAMICIN SULFATE [Concomitant]
     Active Substance: GENTAMICIN SULFATE
     Indication: Rash maculo-papular
     Route: 065
     Dates: start: 20241224
  18. CEFEPIME [Concomitant]
     Active Substance: CEFEPIME HYDROCHLORIDE
     Indication: Febrile neutropenia
     Route: 042
     Dates: start: 20241226, end: 20250102
  19. GRANULOCYTE COLONY-STIMULATING FACTOR NOS [Concomitant]
     Active Substance: GRANULOCYTE COLONY-STIMULATING FACTOR NOS
     Indication: Febrile neutropenia
     Route: 058
     Dates: start: 20241226, end: 20241230
  20. ACETAMINOPHEN [Concomitant]
     Active Substance: ACETAMINOPHEN
     Indication: Spinal fracture
     Route: 048
     Dates: start: 20250104, end: 20250114

REACTIONS (7)
  - Rash maculo-papular [Recovered/Resolved]
  - Febrile neutropenia [Recovered/Resolved]
  - Spinal fracture [Recovering/Resolving]
  - Taste disorder [Not Recovered/Not Resolved]
  - Alopecia [Recovered/Resolved]
  - Stomatitis [Recovered/Resolved]
  - Peripheral sensory neuropathy [Not Recovered/Not Resolved]

NARRATIVE: CASE EVENT DATE: 20241217
